FAERS Safety Report 6898628-2 (Version None)
Quarter: 2010Q3

REPORT INFORMATION
  Report Type: 
  Country: None (occurrence: None)
  Receive Date: 20100802
  Receipt Date: 20071106
  Transmission Date: 20110219
  Serious: Yes (Other)
  Sender: FDA-Public Use
  Company Number: US-PFIZER INC-2007077348

PATIENT
  Sex: Female

DRUGS (1)
  1. LYRICA [Suspect]
     Indication: SURGERY
     Dates: start: 20070801

REACTIONS (7)
  - AMNESIA [None]
  - CONFUSIONAL STATE [None]
  - FLATULENCE [None]
  - GAIT DISTURBANCE [None]
  - NERVOUSNESS [None]
  - TREMOR [None]
  - VERTIGO [None]
